FAERS Safety Report 16147610 (Version 5)
Quarter: 2019Q4

REPORT INFORMATION
  Report Type: Spontaneous
  Country: JP (occurrence: JP)
  Receive Date: 20190402
  Receipt Date: 20191126
  Transmission Date: 20200122
  Serious: Yes (Hospitalization, Other)
  Sender: FDA-Public Use
  Company Number: JP-BRISTOL-MYERS SQUIBB COMPANY-BMS-2019-030393

PATIENT
  Age: 76 Year
  Sex: Female
  Weight: 55.1 kg

DRUGS (6)
  1. YERVOY [Suspect]
     Active Substance: IPILIMUMAB
     Indication: MALIGNANT MELANOMA
     Dosage: 200 MILLIGRAM
     Route: 041
     Dates: start: 20190116, end: 20190227
  2. AMLODIPINE [AMLODIPINE BESILATE] [Concomitant]
     Active Substance: AMLODIPINE BESYLATE
     Indication: HYPERTENSION
     Dosage: 25 MILLIGRAM, QD
     Route: 048
  3. METGLUCO [Concomitant]
     Active Substance: METFORMIN HYDROCHLORIDE
     Indication: DIABETES MELLITUS
     Dosage: 250 MILLIGRAM, BID
     Route: 048
  4. OPDIVO [Suspect]
     Active Substance: NIVOLUMAB
     Indication: MALIGNANT MELANOMA
     Dosage: 80 MILLIGRAM
     Route: 041
     Dates: start: 20190116, end: 20190227
  5. EQUA [Concomitant]
     Active Substance: VILDAGLIPTIN
     Indication: DIABETES MELLITUS
     Dosage: 50 MILLIGRAM, BID
     Route: 048
  6. ATORVASTATIN OD [Concomitant]
     Indication: HYPERLIPIDAEMIA
     Dosage: 50 MILLIGRAM, BID
     Route: 048

REACTIONS (3)
  - Pyrexia [Recovered/Resolved]
  - Hepatic function abnormal [Recovered/Resolved]
  - C-reactive protein increased [Unknown]

NARRATIVE: CASE EVENT DATE: 20190306
